FAERS Safety Report 23903439 (Version 1)
Quarter: 2024Q2

REPORT INFORMATION
  Report Type: Other
  Country: CN (occurrence: None)
  Receive Date: 20240527
  Receipt Date: 20240527
  Transmission Date: 20240716
  Serious: Yes (Other)
  Sender: FDA-Public Use
  Company Number: CN-ROCHE-3567719

PATIENT

DRUGS (3)
  1. BEVACIZUMAB [Suspect]
     Active Substance: BEVACIZUMAB
     Indication: Cervix carcinoma
     Dosage: TWO CYCLES
     Route: 065
  2. DOCETAXEL [Suspect]
     Active Substance: DOCETAXEL\DOCETAXEL ANHYDROUS
     Indication: Cervix carcinoma
     Dosage: TWO CYCLES
     Route: 065
  3. CISPLATIN [Suspect]
     Active Substance: CISPLATIN
     Indication: Cervix carcinoma
     Dosage: TWO CYCLES
     Route: 065

REACTIONS (10)
  - Haematotoxicity [Unknown]
  - Gastrointestinal toxicity [Unknown]
  - Venous thrombosis [Unknown]
  - Hypertension [Unknown]
  - Nausea [Unknown]
  - Diarrhoea [Unknown]
  - Neutropenia [Unknown]
  - Epistaxis [Unknown]
  - Gingival bleeding [Unknown]
  - Dysphonia [Unknown]
